FAERS Safety Report 20131483 (Version 4)
Quarter: 2024Q2

REPORT INFORMATION
  Report Type: Report from Study
  Country: FR (occurrence: FR)
  Receive Date: 20211130
  Receipt Date: 20240424
  Transmission Date: 20240716
  Serious: Yes (Other)
  Sender: FDA-Public Use
  Company Number: FR-TAKEDA-2021TUS075699

PATIENT
  Age: 51 Year
  Sex: Female

DRUGS (16)
  1. TEDUGLUTIDE [Suspect]
     Active Substance: TEDUGLUTIDE
     Indication: Short-bowel syndrome
     Dosage: 2.4 MILLIGRAM, QD
     Route: 042
     Dates: start: 20170221
  2. TEDUGLUTIDE [Suspect]
     Active Substance: TEDUGLUTIDE
     Indication: Short-bowel syndrome
     Dosage: 2.4 MILLIGRAM, QD
     Route: 042
     Dates: start: 20170221
  3. TEDUGLUTIDE [Suspect]
     Active Substance: TEDUGLUTIDE
     Indication: Short-bowel syndrome
     Dosage: 2.4 MILLIGRAM, QD
     Route: 042
     Dates: start: 20170221
  4. TEDUGLUTIDE [Suspect]
     Active Substance: TEDUGLUTIDE
     Indication: Short-bowel syndrome
     Dosage: 2.4 MILLIGRAM, QD
     Route: 042
     Dates: start: 20170221
  5. INNOHEP [Concomitant]
     Active Substance: TINZAPARIN SODIUM
     Indication: Mesenteric vein thrombosis
     Dosage: 4500 INTERNATIONAL UNIT, QD
     Route: 058
     Dates: start: 201502
  6. VITAMIN C [Concomitant]
     Active Substance: ASCORBIC ACID
     Indication: Asthenia
     Dosage: 500 MILLIGRAM, BID
     Route: 048
     Dates: start: 20160819
  7. BROMAZEPAM [Concomitant]
     Active Substance: BROMAZEPAM
     Indication: Depression
     Dosage: 1.50 MILLIGRAM, TID
     Route: 048
     Dates: start: 20160521
  8. Gavisconell [Concomitant]
     Indication: Dyspepsia
     Dosage: 10 MILLILITER
     Route: 048
     Dates: start: 201909, end: 202002
  9. VITAMIN K [Concomitant]
     Active Substance: PHYTONADIONE
     Indication: Vitamin supplementation
     Dosage: 10 MILLIGRAM, 1/WEEK
     Route: 065
  10. TAUROLIDINE [Concomitant]
     Active Substance: TAUROLIDINE
     Indication: Prophylaxis
     Dosage: 2 MILLILITER
     Route: 065
  11. Spasfon [Concomitant]
     Indication: Pain
     Dosage: 40 MILLIGRAM, QD
     Route: 065
  12. CHOLECALCIFEROL [Concomitant]
     Active Substance: CHOLECALCIFEROL
     Indication: Vitamin supplementation
     Dosage: 100000 INTERNATIONAL UNIT, MONTHLY
     Route: 065
  13. AMOXICILLIN [Concomitant]
     Active Substance: AMOXICILLIN
     Indication: Vascular device infection
     Dosage: 500 GRAM, BID
     Route: 048
     Dates: start: 20240109, end: 20240119
  14. AMOXICILLIN [Concomitant]
     Active Substance: AMOXICILLIN
     Dosage: 1 GRAM, BID
     Route: 048
     Dates: start: 20231204, end: 20231210
  15. CHOLECALCIFEROL [Concomitant]
     Active Substance: CHOLECALCIFEROL
     Indication: Osteoporosis
     Dosage: 5001 INTERNATIONAL UNIT, MONTHLY
     Route: 048
     Dates: start: 20240131
  16. Orocal [Concomitant]
     Indication: Osteoporosis
     Dosage: 500 MILLIGRAM, QD
     Route: 048
     Dates: start: 20240131

REACTIONS (1)
  - Malignant melanoma [Recovered/Resolved]

NARRATIVE: CASE EVENT DATE: 20210930
